FAERS Safety Report 6710105-8 (Version None)
Quarter: 2010Q2

REPORT INFORMATION
  Report Type: 
  Country: None (occurrence: None)
  Receive Date: 20100504
  Receipt Date: 20100423
  Transmission Date: 20101027
  Serious: Yes (Death)
  Sender: FDA-Public Use
  Company Number: US-PFIZER INC-2010029816

PATIENT
  Sex: Male

DRUGS (1)
  1. SUTENT [Suspect]
     Dosage: 50 MG, QD 4 WEEKS ON, 2 WEEKS OFF

REACTIONS (2)
  - DISEASE PROGRESSION [None]
  - NEOPLASM [None]
